FAERS Safety Report 4905349-1 (Version None)
Quarter: 2006Q1

REPORT INFORMATION
  Report Type: 
  Country: None (occurrence: None)
  Receive Date: 20060207
  Receipt Date: 20060207
  Transmission Date: 20060701
  Serious: Yes (Life-Threatening)
  Sender: FDA-Public Use
  Company Number: None

PATIENT
  Sex: Female
  Weight: 78.47 kg

DRUGS (3)
  1. OPTIRAY 320 [Suspect]
     Indication: CATHETERISATION CARDIAC
     Dosage: INTRACARDIAC
     Route: 016
     Dates: start: 20051206, end: 20051206
  2. MARCAINE [Concomitant]
  3. BENADRYL [Concomitant]

REACTIONS (6)
  - ANAPHYLACTIC REACTION [None]
  - BRADYCARDIA [None]
  - COUGH [None]
  - HYPOTENSION [None]
  - OXYGEN SATURATION DECREASED [None]
  - PROCEDURAL COMPLICATION [None]
